FAERS Safety Report 12124610 (Version 1)
Quarter: 2016Q1

REPORT INFORMATION
  Report Type: Spontaneous
  Country: US (occurrence: US)
  Receive Date: 20160229
  Receipt Date: 20160229
  Transmission Date: 20160526
  Serious: No
  Sender: FDA-Public Use
  Company Number: PHEH2015US010483

PATIENT
  Age: 15 Year
  Sex: Female

DRUGS (1)
  1. AFINITOR [Suspect]
     Active Substance: EVEROLIMUS
     Indication: BRAIN NEOPLASM MALIGNANT
     Dosage: 10 MG, QD (TAKE 1 TABLET BY MOUTH EVERYDAY)
     Route: 048
     Dates: start: 20150120

REACTIONS (3)
  - Aphthous ulcer [Unknown]
  - Oropharyngeal pain [Unknown]
  - Stomatitis [Unknown]

NARRATIVE: CASE EVENT DATE: 20150526
